FAERS Safety Report 11455591 (Version 1)
Quarter: 2015Q3

REPORT INFORMATION
  Report Type: Spontaneous
  Country: US (occurrence: US)
  Receive Date: 20150903
  Receipt Date: 20150903
  Transmission Date: 20151125
  Serious: No
  Sender: FDA-Public Use
  Company Number: US-BEH-2014044206

PATIENT
  Sex: Female
  Weight: 108 kg

DRUGS (38)
  1. DOCUSATE [Concomitant]
     Active Substance: DOCUSATE
  2. BILBERRY [Concomitant]
     Active Substance: BILBERRY
  3. CYMBALTA [Concomitant]
     Active Substance: DULOXETINE HYDROCHLORIDE
  4. ZEMAIRA [Suspect]
     Active Substance: .ALPHA.1-PROTEINASE INHIBITOR HUMAN
     Indication: ALPHA-1 ANTI-TRYPSIN DEFICIENCY
     Route: 042
  5. PREDNISONE. [Concomitant]
     Active Substance: PREDNISONE
  6. KEFLEX [Concomitant]
     Active Substance: CEPHALEXIN
  7. HYDROMORPHONE [Concomitant]
     Active Substance: HYDROMORPHONE
  8. LIDOCAINE VISCOUS [Concomitant]
     Active Substance: LIDOCAINE HYDROCHLORIDE
  9. METFORMIN [Concomitant]
     Active Substance: METFORMIN HYDROCHLORIDE
  10. DICYCLOMINE [Concomitant]
     Active Substance: DICYCLOMINE HYDROCHLORIDE
  11. ALL OTHER NON-THERAPEUTIC PRODUCTS [Concomitant]
     Active Substance: UNSPECIFIED INGREDIENT
  12. CALCIUM+VIT+D [Concomitant]
  13. FENTANYL. [Concomitant]
     Active Substance: FENTANYL
  14. NYSTATIN. [Concomitant]
     Active Substance: NYSTATIN
  15. MUCINEX [Concomitant]
     Active Substance: GUAIFENESIN
  16. RANITIDINE [Concomitant]
     Active Substance: RANITIDINE\RANITIDINE HYDROCHLORIDE
  17. LIDOCAINE. [Concomitant]
     Active Substance: LIDOCAINE
  18. EQL VITAMIN E [Concomitant]
  19. QVAR [Concomitant]
     Active Substance: BECLOMETHASONE DIPROPIONATE
  20. ZEMAIRA [Suspect]
     Active Substance: .ALPHA.1-PROTEINASE INHIBITOR HUMAN
     Indication: ASTHMA
     Route: 042
  21. DIPHENHYDRAMINE. [Concomitant]
     Active Substance: DIPHENHYDRAMINE
  22. DIOVAN [Concomitant]
     Active Substance: VALSARTAN
  23. COENZYME [Concomitant]
     Active Substance: UBIDECARENONE
  24. EQL GARLIC [Concomitant]
  25. CETIRIZINE [Concomitant]
     Active Substance: CETIRIZINE HYDROCHLORIDE
  26. EPIPEN [Concomitant]
     Active Substance: EPINEPHRINE
  27. HYDROXYZINE [Concomitant]
     Active Substance: HYDROXYZINE\HYDROXYZINE HYDROCHLORIDE
  28. HYDROCODONE-APAP [Concomitant]
     Active Substance: ACETAMINOPHEN\HYDROCODONE
  29. IBUPROFEN. [Concomitant]
     Active Substance: IBUPROFEN
  30. LECITHIN [Concomitant]
     Active Substance: LECITHIN
  31. L-M-X [Concomitant]
  32. CIPRO [Concomitant]
     Active Substance: CIPROFLOXACIN HYDROCHLORIDE
  33. CRANBERRY. [Concomitant]
     Active Substance: CRANBERRY
  34. VITAMIN B [Concomitant]
     Active Substance: VITAMIN B
  35. XOPENEX [Concomitant]
     Active Substance: LEVALBUTEROL HYDROCHLORIDE
  36. SODIUM CHLORIDE. [Concomitant]
     Active Substance: SODIUM CHLORIDE
  37. CYCLOBENZAPRINE [Concomitant]
     Active Substance: CYCLOBENZAPRINE
  38. MAGNESIUM [Concomitant]
     Active Substance: MAGNESIUM

REACTIONS (1)
  - Eye swelling [Unknown]
